FAERS Safety Report 5406697-1 (Version None)
Quarter: 2007Q3

REPORT INFORMATION
  Report Type: 
  Country: None (occurrence: None)
  Receive Date: 20070803
  Receipt Date: 20070803
  Transmission Date: 20080115
  Serious: Yes (Hospitalization)
  Sender: FDA-Public Use
  Company Number: None

PATIENT
  Sex: Female
  Weight: 70 kg

DRUGS (2)
  1. CARBOPLATIN [Suspect]
     Dosage: 525 MG
  2. TAXOL [Suspect]
     Dosage: 407 MG

REACTIONS (7)
  - ABDOMINAL WALL DISORDER [None]
  - BLOOD CULTURE POSITIVE [None]
  - CELLULITIS [None]
  - CULTURE TISSUE SPECIMEN POSITIVE [None]
  - NEUTROPHIL COUNT DECREASED [None]
  - STAPHYLOCOCCAL INFECTION [None]
  - WHITE BLOOD CELL COUNT DECREASED [None]
